FAERS Safety Report 22389268 (Version 1)
Quarter: 2023Q2

REPORT INFORMATION
  Report Type: Spontaneous
  Country: US (occurrence: US)
  Receive Date: 20230531
  Receipt Date: 20230531
  Transmission Date: 20230721
  Serious: Yes (Hospitalization, Other)
  Sender: FDA-Public Use
  Company Number: US-PFIZER INC-US-GBT-020385

PATIENT
  Age: 9 Year
  Sex: Female

DRUGS (2)
  1. OXBRYTA [Suspect]
     Active Substance: VOXELOTOR
     Indication: Sickle cell disease
     Dosage: 900 MG DAILY
     Route: 048
     Dates: start: 20221007
  2. OXBRYTA [Suspect]
     Active Substance: VOXELOTOR
     Dosage: 300 MG TABLETS FOR ORAL SUSPENSION, 3 TABLETS ONCE DAILY
     Route: 048
     Dates: start: 202210

REACTIONS (4)
  - Sickle cell anaemia with crisis [Recovered/Resolved]
  - Sickle cell anaemia with crisis [Recovered/Resolved]
  - Nausea [Unknown]
  - Inflammation [Unknown]

NARRATIVE: CASE EVENT DATE: 20221101
